FAERS Safety Report 6724112-2 (Version None)
Quarter: 2010Q2

REPORT INFORMATION
  Report Type: 
  Country: None (occurrence: None)
  Receive Date: 20100513
  Receipt Date: 20100428
  Transmission Date: 20101027
  Serious: Yes (Hospitalization)
  Sender: FDA-Public Use
  Company Number: US-ROCHE-701998

PATIENT
  Sex: Female
  Weight: 136.1 kg

DRUGS (1)
  1. XENICAL [Suspect]
     Indication: OBESITY
     Route: 048

REACTIONS (5)
  - CONDITION AGGRAVATED [None]
  - DIABETES MELLITUS [None]
  - FALL [None]
  - HYPERTENSION [None]
  - WEIGHT INCREASED [None]
